FAERS Safety Report 18843475 (Version 1)
Quarter: 2021Q1

REPORT INFORMATION
  Report Type: Spontaneous
  Country: US (occurrence: US)
  Receive Date: 20210203
  Receipt Date: 20210203
  Transmission Date: 20210419
  Serious: Yes (Hospitalization)
  Sender: FDA-Public Use
  Company Number: None

PATIENT
  Age: 48 Year
  Sex: Female

DRUGS (19)
  1. BANOPHEN [Concomitant]
     Active Substance: DIPHENHYDRAMINE HYDROCHLORIDE
  2. CARISOPRODOL. [Concomitant]
     Active Substance: CARISOPRODOL
  3. PREGABALIN. [Concomitant]
     Active Substance: PREGABALIN
  4. ZTHROMAX [Concomitant]
  5. HUMIRA [Suspect]
     Active Substance: ADALIMUMAB
     Indication: ANKYLOSING SPONDYLITIS
     Dosage: ?          OTHER DOSE:1 SYR;?
     Route: 058
     Dates: start: 20170715
  6. ADDERALL [Concomitant]
     Active Substance: AMPHETAMINE ASPARTATE\AMPHETAMINE SULFATE\DEXTROAMPHETAMINE SACCHARATE\DEXTROAMPHETAMINE SULFATE
  7. ESTRADIOL. [Concomitant]
     Active Substance: ESTRADIOL
  8. HYDROCO/APAP [Concomitant]
     Active Substance: ACETAMINOPHEN\HYDROCODONE
  9. NAPROXEN. [Concomitant]
     Active Substance: NAPROXEN
  10. RESVERATROL [Concomitant]
     Active Substance: DIETARY SUPPLEMENT\RESVERATROL
  11. CENTRUM SILVER [Concomitant]
     Active Substance: MINERALS\VITAMINS
  12. MULTIVITAMIN [Concomitant]
     Active Substance: VITAMINS
  13. CATS CLAW [Concomitant]
  14. DEXTROAMPHET SACCHARAT, AMPHET ASPARTATE, DEXTROAMPHET SULFATE AND AMPHET SULFAT [Concomitant]
     Active Substance: AMPHETAMINE ASPARTATE\AMPHETAMINE SULFATE\DEXTROAMPHETAMINE SACCHARATE\DEXTROAMPHETAMINE SULFATE
  15. TRAMADOL HCL [Concomitant]
     Active Substance: TRAMADOL HYDROCHLORIDE
  16. FENTANYL. [Concomitant]
     Active Substance: FENTANYL
  17. OXYCODONE [Concomitant]
     Active Substance: OXYCODONE
  18. DIAZEPAM. [Concomitant]
     Active Substance: DIAZEPAM
  19. PRDNISONE [Concomitant]

REACTIONS (1)
  - Thoracic outlet syndrome [None]

NARRATIVE: CASE EVENT DATE: 20201028
